FAERS Safety Report 9671993 (Version 7)
Quarter: 2014Q2

REPORT INFORMATION
  Report Type: Report from Study
  Country: AU (occurrence: AU)
  Receive Date: 20131106
  Receipt Date: 20140609
  Transmission Date: 20141212
  Serious: Yes (Hospitalization, Other)
  Sender: FDA-Public Use
  Company Number: AU-ROCHE-1274805

PATIENT
  Age: 35 Year
  Sex: Female
  Weight: 67.5 kg

DRUGS (23)
  1. OBINUTUZUMAB [Suspect]
     Indication: B-CELL LYMPHOMA
     Dosage: DATE OF LAST DOSE PRIOR TO SAE:11/SEP/2013
     Route: 042
     Dates: start: 20110907
  2. BENDAMUSTINE [Suspect]
     Indication: B-CELL LYMPHOMA
     Dosage: LAST DOSE PRIOR TO SAE: 02/FEB/2012
     Route: 042
     Dates: start: 20110908
  3. OXYNORM [Concomitant]
     Dosage: AS REQUIRED, VARIES
     Route: 065
     Dates: start: 20131014
  4. TEMAZEPAM [Concomitant]
     Route: 065
     Dates: start: 20110914
  5. METOCLOPRAMIDE [Concomitant]
     Dosage: AS REQUIRED
     Route: 065
  6. APREPITANT [Concomitant]
     Route: 065
     Dates: start: 20111005
  7. TROPISETRON [Concomitant]
     Route: 065
     Dates: start: 20110908
  8. FLUCONAZOLE [Concomitant]
     Route: 065
     Dates: start: 201308
  9. BUSCOPAN [Concomitant]
     Dosage: 10-20 MG
     Route: 065
     Dates: start: 20130911
  10. NYSTATIN [Concomitant]
     Route: 065
     Dates: start: 20130911
  11. BUDESONIDE [Concomitant]
     Route: 048
     Dates: start: 20131101, end: 20140217
  12. POTASSIUM CHLORIDE [Concomitant]
     Route: 065
     Dates: start: 20121017
  13. CHOLECALCIFEROL [Concomitant]
     Route: 065
     Dates: start: 20131024
  14. MAGNESIUM ASPARTATE [Concomitant]
     Route: 065
     Dates: start: 20131024
  15. ONDANSETRON [Concomitant]
     Dosage: AS REQUIRED: VARIES
     Route: 065
     Dates: start: 20131014
  16. PARACETAMOL [Concomitant]
     Dosage: PRN: VARIES.
     Route: 065
     Dates: start: 20131024
  17. METHOTREXATE [Concomitant]
     Dosage: ONLY ON SATURDAY WITH AIM OF INCREASING.
     Route: 065
     Dates: start: 20140228
  18. METHOTREXATE [Concomitant]
     Dosage: SATURDAY
     Route: 065
     Dates: start: 20140301, end: 20140315
  19. METHOTREXATE [Concomitant]
     Route: 065
     Dates: start: 20140322
  20. FOLIC ACID [Concomitant]
     Dosage: SUNDAY-FRIDAY
     Route: 065
     Dates: start: 20140228
  21. CHOLECALCIFEROL [Concomitant]
     Dosage: VITAMIN D
     Route: 065
     Dates: start: 20131024
  22. PANTOPRAZOLE [Concomitant]
     Route: 065
     Dates: start: 20131014
  23. BETAHISTINE [Concomitant]
     Route: 065
     Dates: start: 20131007

REACTIONS (3)
  - Crohn^s disease [Not Recovered/Not Resolved]
  - Crohn^s disease [Recovered/Resolved]
  - Intestinal obstruction [Recovered/Resolved]
